FAERS Safety Report 24160306 (Version 1)
Quarter: 2024Q3

REPORT INFORMATION
  Report Type: Report from Study
  Country: US (occurrence: US)
  Receive Date: 20240801
  Receipt Date: 20240801
  Transmission Date: 20241016
  Serious: No
  Sender: ALEXION PHARMACEUTICALS
  Company Number: US-ALXN-A202301210

PATIENT
  Sex: Male

DRUGS (3)
  1. ULTOMIRIS [Suspect]
     Active Substance: RAVULIZUMAB-CWVZ
     Indication: Myasthenia gravis
     Dosage: UNK
     Route: 065
  2. SOLIRIS [Suspect]
     Active Substance: ECULIZUMAB
     Indication: Myasthenia gravis
     Dosage: UNK
     Route: 065
  3. LISINOPRIL [Suspect]
     Active Substance: LISINOPRIL
     Indication: Blood pressure increased
     Dosage: UNK
     Route: 065

REACTIONS (5)
  - Muscular weakness [Not Recovered/Not Resolved]
  - Sluggishness [Unknown]
  - Blood pressure increased [Unknown]
  - Gastrointestinal disorder [Unknown]
  - Weight decreased [Unknown]
